FAERS Safety Report 6387157-0 (Version None)
Quarter: 2009Q4

REPORT INFORMATION
  Report Type: 
  Country: None (occurrence: None)
  Receive Date: 20091002
  Receipt Date: 20090925
  Transmission Date: 20100525
  Serious: Yes (Other)
  Sender: FDA-Public Use
  Company Number: PHHY2009MX41373

PATIENT
  Sex: Female

DRUGS (4)
  1. TRILEPTAL [Suspect]
     Indication: EPILEPSY
     Dosage: 19 ML, PER DAY
     Route: 048
     Dates: start: 20040901
  2. TRILEPTAL [Suspect]
     Dosage: 13.5 ML, PER DAY
     Route: 048
     Dates: start: 20090505
  3. KEPPRA [Concomitant]
     Indication: EPILEPSY
     Dosage: 4 TABLETS PER DAY
     Dates: start: 20081001
  4. MYSOLINE [Concomitant]
     Indication: EPILEPSY
     Dosage: 3 TABLETS PER DAY
     Dates: start: 20090505

REACTIONS (1)
  - CONVULSION [None]
